FAERS Safety Report 9557139 (Version 3)
Quarter: 2013Q4

REPORT INFORMATION
  Report Type: Spontaneous
  Country: US (occurrence: US)
  Receive Date: 20130926
  Receipt Date: 20131118
  Transmission Date: 20140711
  Serious: Yes (Other)
  Sender: FDA-Public Use
  Company Number: US-PFIZER INC-2013275718

PATIENT
  Age: 48 Year
  Sex: Female

DRUGS (3)
  1. CELEBREX [Suspect]
     Dosage: 200 MG, 1X/DAY
     Route: 048
     Dates: start: 20110520, end: 20130531
  2. IBUPROFEN [Suspect]
     Dosage: UNK
  3. ALEVE [Suspect]
     Dosage: UNK

REACTIONS (7)
  - Neutropenia [Unknown]
  - Gastrointestinal disorder [Unknown]
  - Fibromyalgia [Unknown]
  - Osteoarthritis [Unknown]
  - Plantar fasciitis [Unknown]
  - Arthralgia [Unknown]
  - Obesity [Unknown]
